FAERS Safety Report 6758294-3 (Version None)
Quarter: 2010Q2

REPORT INFORMATION
  Report Type: 
  Country: None (occurrence: None)
  Receive Date: 20100607
  Receipt Date: 20100527
  Transmission Date: 20101027
  Serious: Yes (Other)
  Sender: FDA-Public Use
  Company Number: US-BAXTER-2010BH014295

PATIENT
  Age: 44 Year
  Sex: Female

DRUGS (19)
  1. MIDAZOLAM HYDROCHLORIDE [Suspect]
     Indication: DRUG USE FOR UNKNOWN INDICATION
     Route: 042
  2. FENTANYL CITRATE [Suspect]
     Indication: ANAESTHESIA
     Route: 042
  3. FENTANYL CITRATE [Suspect]
     Route: 042
  4. ONDANSETRON [Suspect]
     Indication: VOMITING
     Route: 065
  5. SUPRANE [Suspect]
     Indication: EMBOLISM
     Route: 055
  6. CLONAZEPAM [Suspect]
     Indication: PSYCHIATRIC SYMPTOM
     Route: 065
  7. DULOXETINE [Suspect]
     Indication: PSYCHIATRIC SYMPTOM
     Route: 065
  8. LAMOTRIGINE [Suspect]
     Indication: CONVULSION
     Route: 065
  9. TOPIRAMATE [Suspect]
     Indication: CONVULSION
     Route: 065
  10. LITHIUM [Suspect]
     Indication: MENTAL DISORDER
     Route: 065
  11. QUETIAPINE [Suspect]
     Indication: MENTAL DISORDER
     Route: 065
  12. PROPOFOL [Suspect]
     Indication: ANAESTHESIA
     Route: 042
  13. ROCURONIUM [Suspect]
     Indication: ANAESTHESIA
     Route: 042
  14. HYDROMORPHONE HCL [Suspect]
     Indication: ANAESTHESIA
     Route: 042
  15. ONDANSETRON [Concomitant]
     Indication: PROPHYLAXIS OF NAUSEA AND VOMITING
     Route: 042
  16. LACTATED RINGER'S [Concomitant]
     Indication: DRUG USE FOR UNKNOWN INDICATION
     Route: 042
  17. HEXTEND [Concomitant]
     Indication: DRUG USE FOR UNKNOWN INDICATION
     Route: 042
  18. NEOSTIGMINE [Concomitant]
     Indication: DRUG USE FOR UNKNOWN INDICATION
     Route: 042
  19. GLYCOPYRROLATE [Concomitant]
     Indication: DRUG USE FOR UNKNOWN INDICATION
     Route: 042

REACTIONS (1)
  - SEROTONIN SYNDROME [None]
